FAERS Safety Report 12208316 (Version 1)
Quarter: 2016Q1

REPORT INFORMATION
  Report Type: Other
  Country: GB (occurrence: GB)
  Receive Date: 20160324
  Receipt Date: 20160324
  Transmission Date: 20160526
  Serious: Yes (Other)
  Sender: FDA-Public Use
  Company Number: GB-PERRIGO-16GB014266

PATIENT

DRUGS (1)
  1. IBUPROFEN. [Suspect]
     Active Substance: IBUPROFEN
     Indication: DYSMENORRHOEA
     Dosage: 2 DF, UNK
     Route: 048
     Dates: start: 20160303, end: 20160303

REACTIONS (3)
  - Swelling face [Recovered/Resolved with Sequelae]
  - Urticaria [Recovered/Resolved with Sequelae]
  - Lip swelling [Recovered/Resolved with Sequelae]

NARRATIVE: CASE EVENT DATE: 20160303
